FAERS Safety Report 9234215 (Version 2)
Quarter: 2013Q2

REPORT INFORMATION
  Report Type: Spontaneous
  Country: US (occurrence: US)
  Receive Date: 20130416
  Receipt Date: 20130529
  Transmission Date: 20140414
  Serious: Yes (Hospitalization)
  Sender: FDA-Public Use
  Company Number: US-PERRIGO-13US003722

PATIENT
  Age: 9 Year
  Sex: Male
  Weight: 45.35 kg

DRUGS (1)
  1. IBUPROFEN 20 MG/ML CHILD GRAPE 660 [Suspect]
     Indication: HEADACHE
     Dosage: 300 MG, SINGLE
     Route: 048
     Dates: start: 20130331, end: 20130331

REACTIONS (8)
  - Hypersensitivity [Recovered/Resolved]
  - Anaphylactic shock [Recovered/Resolved]
  - Loss of consciousness [Recovered/Resolved]
  - Lip swelling [Recovered/Resolved]
  - Dysphagia [Recovered/Resolved]
  - Blood pressure decreased [Recovered/Resolved]
  - Urticaria [Recovered/Resolved]
  - Fatigue [Not Recovered/Not Resolved]
